FAERS Safety Report 10003935 (Version 1)
Quarter: 2014Q1

REPORT INFORMATION
  Report Type: Spontaneous
  Country: GB (occurrence: GB)
  Receive Date: 20140312
  Receipt Date: 20140312
  Transmission Date: 20141002
  Serious: Yes (Life-Threatening, Hospitalization)
  Sender: FDA-Public Use
  Company Number: GB-009507513-1403GBR004381

PATIENT
  Age: 70 Year
  Sex: Male
  Weight: 59.41 kg

DRUGS (5)
  1. SINEMET [Suspect]
     Indication: PARKINSON^S DISEASE
     Route: 048
  2. ENTACAPONE [Suspect]
     Indication: PARKINSON^S DISEASE
     Route: 048
  3. MADOPAR [Suspect]
     Route: 048
  4. SEROQUEL [Concomitant]
  5. GASTROINTESTINAL PREPARATIONS (UNSPECIFIED) [Concomitant]

REACTIONS (10)
  - Hypokinesia [Recovered/Resolved with Sequelae]
  - Dehydration [Recovered/Resolved with Sequelae]
  - Drug dose omission [Unknown]
  - Paralysis [Recovered/Resolved with Sequelae]
  - Quality of life decreased [Unknown]
  - Speech disorder [Recovered/Resolved with Sequelae]
  - Loss of consciousness [Recovered/Resolved with Sequelae]
  - Withdrawal syndrome [Recovered/Resolved with Sequelae]
  - Dyskinesia [Recovered/Resolved with Sequelae]
  - Dysphagia [Recovered/Resolved with Sequelae]
